FAERS Safety Report 17673254 (Version 3)
Quarter: 2020Q3

REPORT INFORMATION
  Report Type: Report from Study
  Country: US (occurrence: US)
  Receive Date: 20200415
  Receipt Date: 20200713
  Transmission Date: 20201102
  Serious: Yes (Other)
  Sender: FDA-Public Use
  Company Number: US-ACTELION-A-NJ2019-199656

PATIENT
  Sex: Female
  Weight: 73.92 kg

DRUGS (2)
  1. ADEMPAS [Concomitant]
     Active Substance: RIOCIGUAT
  2. OPSUMIT [Suspect]
     Active Substance: MACITENTAN
     Indication: PULMONARY ARTERIAL HYPERTENSION
     Dosage: 10 MG, QD
     Route: 048

REACTIONS (7)
  - Pulmonary arterial pressure increased [Recovering/Resolving]
  - Colon cancer [Unknown]
  - Peripheral swelling [Unknown]
  - Sinus disorder [Unknown]
  - Dyspnoea exertional [Not Recovered/Not Resolved]
  - Oral candidiasis [Unknown]
  - Lung disorder [Unknown]
